FAERS Safety Report 18782695 (Version 1)
Quarter: 2021Q1

REPORT INFORMATION
  Report Type: Spontaneous
  Country: US (occurrence: US)
  Receive Date: 20210125
  Receipt Date: 20210125
  Transmission Date: 20210419
  Serious: No
  Sender: FDA-Public Use
  Company Number: US-AMGEN-USASP2021009121

PATIENT
  Sex: Female

DRUGS (1)
  1. PROLIA [Suspect]
     Active Substance: DENOSUMAB
     Indication: PRODUCT USED FOR UNKNOWN INDICATION
     Dosage: UNK
     Route: 065

REACTIONS (10)
  - Skin warm [Unknown]
  - Pharyngeal swelling [Not Recovered/Not Resolved]
  - Tinnitus [Unknown]
  - Raynaud^s phenomenon [Unknown]
  - Pruritus [Unknown]
  - Skin exfoliation [Unknown]
  - Erythema [Unknown]
  - Muscle spasms [Unknown]
  - Nail disorder [Unknown]
  - Feeling abnormal [Not Recovered/Not Resolved]
